FAERS Safety Report 7512669-3 (Version None)
Quarter: 2011Q2

REPORT INFORMATION
  Report Type: 
  Country: None (occurrence: None)
  Receive Date: 20110531
  Receipt Date: 20081130
  Transmission Date: 20111010
  Serious: Yes (Death, Other)
  Sender: FDA-Public Use
  Company Number: US-BAYER-200840008NA

PATIENT
  Age: 75 Year
  Sex: Female
  Weight: 63 kg

DRUGS (14)
  1. HEPARIN [Concomitant]
     Dosage: UNK
     Dates: start: 19991007
  2. NITROSTAT [Concomitant]
  3. AMICAR [Concomitant]
     Dosage: UNK
     Route: 042
     Dates: start: 19991007, end: 19991007
  4. TRASYLOL [Suspect]
     Indication: AORTIC VALVE REPLACEMENT
  5. MANNITOL [Concomitant]
     Dosage: UNK
     Dates: start: 19991007
  6. PLASMA [Concomitant]
     Dosage: 4 U, UNK
     Route: 042
     Dates: start: 19991007
  7. ZINACEF [Concomitant]
     Dosage: UNK
     Dates: start: 19991007
  8. PLATELETS [Concomitant]
     Dosage: 6 PACKS
     Route: 042
     Dates: start: 19991007
  9. TRASYLOL [Suspect]
     Indication: MITRAL VALVE REPLACEMENT
  10. TRASYLOL [Suspect]
     Indication: ATRIAL SEPTAL DEFECT REPAIR
  11. PROTAMINE SULFATE [Concomitant]
     Dosage: UNK
     Dates: start: 19991007
  12. ACETYLSALICYLIC ACID SRT [Concomitant]
  13. TRASYLOL [Suspect]
     Indication: CORONARY ARTERY BYPASS
     Route: 042
     Dates: start: 19991010
  14. RED BLOOD CELLS [Concomitant]
     Dosage: 900 ML, UNK
     Route: 042
     Dates: start: 19991007

REACTIONS (13)
  - RENAL FAILURE [None]
  - EMOTIONAL DISTRESS [None]
  - STRESS [None]
  - RENAL IMPAIRMENT [None]
  - PAIN [None]
  - ANHEDONIA [None]
  - DEATH [None]
  - MULTI-ORGAN FAILURE [None]
  - RENAL INJURY [None]
  - UNEVALUABLE EVENT [None]
  - FEAR [None]
  - ANXIETY [None]
  - INJURY [None]
